FAERS Safety Report 23314116 (Version 1)
Quarter: 2023Q4

REPORT INFORMATION
  Report Type: Spontaneous
  Country: JP (occurrence: JP)
  Receive Date: 20231219
  Receipt Date: 20231219
  Transmission Date: 20240110
  Serious: Yes (Other)
  Sender: FDA-Public Use
  Company Number: JP-PFIZER INC-PV202300202131

PATIENT
  Age: 10 Decade

DRUGS (2)
  1. VFEND [Suspect]
     Active Substance: VORICONAZOLE
     Dosage: 300 MG, 2X/DAY
     Route: 048
     Dates: start: 20231209, end: 20231209
  2. VFEND [Suspect]
     Active Substance: VORICONAZOLE
     Dosage: 150 MG, 2X/DAY
     Route: 048
     Dates: start: 20231210

REACTIONS (1)
  - Acute kidney injury [Unknown]

NARRATIVE: CASE EVENT DATE: 20231212
